FAERS Safety Report 16456334 (Version 1)
Quarter: 2019Q2

REPORT INFORMATION
  Report Type: Spontaneous
  Country: CN (occurrence: CN)
  Receive Date: 20190620
  Receipt Date: 20190620
  Transmission Date: 20190711
  Serious: Yes (Other)
  Sender: FDA-Public Use
  Company Number: CN-PFIZER INC-2019258613

PATIENT
  Age: 90 Year
  Sex: Male
  Weight: 65 kg

DRUGS (2)
  1. EBASTINE [Suspect]
     Active Substance: EBASTINE
     Indication: PRURITUS
     Dosage: 10 MG, 1X/DAY
     Route: 048
     Dates: start: 20190420, end: 20190603
  2. LIPITOR [Suspect]
     Active Substance: ATORVASTATIN CALCIUM
     Indication: DYSLIPIDAEMIA
     Dosage: 20 MG, 1X/DAY
     Route: 048
     Dates: start: 20190304, end: 20190603

REACTIONS (3)
  - Blood cholinesterase increased [Recovering/Resolving]
  - Liver function test abnormal [Recovering/Resolving]
  - Blood alkaline phosphatase increased [Recovering/Resolving]

NARRATIVE: CASE EVENT DATE: 20190603
